FAERS Safety Report 5398677-X (Version None)
Quarter: 2007Q3

REPORT INFORMATION
  Report Type: 
  Country: None (occurrence: None)
  Receive Date: 20070726
  Receipt Date: 20061130
  Transmission Date: 20080115
  Serious: No
  Sender: FDA-Public Use
  Company Number: US-AMGEN-KDL202339

PATIENT
  Sex: Male
  Weight: 121.2 kg

DRUGS (14)
  1. PROCRIT [Suspect]
     Indication: RENAL FAILURE CHRONIC
     Route: 042
  2. IRON DEXTRAN [Suspect]
  3. BENADRYL [Concomitant]
  4. RENAGEL [Concomitant]
  5. BENICAR [Concomitant]
  6. NOVOLIN 70/30 [Concomitant]
  7. PLAVIX [Concomitant]
  8. ZOCOR [Concomitant]
  9. NEURONTIN [Concomitant]
  10. DIATX [Concomitant]
  11. ECOTRIN [Concomitant]
  12. LEVOTHYROXINE SODIUM [Concomitant]
  13. SENSIPAR [Concomitant]
  14. DICLOXACILLIN [Concomitant]

REACTIONS (1)
  - DRUG INEFFECTIVE [None]
